FAERS Safety Report 6899925-7 (Version None)
Quarter: 2010Q3

REPORT INFORMATION
  Report Type: 
  Country: None (occurrence: None)
  Receive Date: 20100803
  Receipt Date: 20080117
  Transmission Date: 20110219
  Serious: Yes (Other)
  Sender: FDA-Public Use
  Company Number: US-PFIZER INC-2007107015

PATIENT
  Age: 64 Year
  Sex: Female
  Weight: 54.4 kg

DRUGS (6)
  1. LYRICA [Suspect]
     Indication: DIABETIC NEUROPATHY
  2. ANGIOTENSIN II ANTAGONISTS [Concomitant]
     Indication: HYPERTENSION
  3. NEURONTIN [Concomitant]
     Indication: DIABETIC NEUROPATHY
  4. METFORMIN HCL [Concomitant]
     Indication: DIABETES MELLITUS
  5. STATINS [Concomitant]
     Indication: HYPERLIPIDAEMIA
  6. POTASSIUM CHLORIDE [Concomitant]
     Indication: BLOOD POTASSIUM DECREASED
     Dosage: 6 EVERY 1 DAYS

REACTIONS (1)
  - WEIGHT INCREASED [None]
